FAERS Safety Report 7880660-3 (Version None)
Quarter: 2011Q4

REPORT INFORMATION
  Report Type: 
  Country: None (occurrence: None)
  Receive Date: 20111101
  Receipt Date: 20100707
  Transmission Date: 20120403
  Serious: No
  Sender: FDA-Public Use
  Company Number: US-BAYER-201027469NA

PATIENT
  Age: 73 Year
  Sex: Female

DRUGS (2)
  1. ATENOLOL [Concomitant]
  2. AVELOX [Suspect]
     Indication: SINUSITIS
     Dosage: 400 MG, QD
     Route: 048
     Dates: start: 20100701, end: 20100702

REACTIONS (1)
  - TREMOR [None]
